FAERS Safety Report 15383429 (Version 4)
Quarter: 2018Q4

REPORT INFORMATION
  Report Type: Spontaneous
  Country: US (occurrence: US)
  Receive Date: 20180913
  Receipt Date: 20181017
  Transmission Date: 20190204
  Serious: Yes (Hospitalization)
  Sender: FDA-Public Use
  Company Number: US-ACTELION-A-NJ2018-178717

PATIENT
  Age: 61 Year
  Sex: Male
  Weight: 73.47 kg

DRUGS (4)
  1. VELETRI [Suspect]
     Active Substance: EPOPROSTENOL
     Indication: PULMONARY HYPERTENSION
     Dosage: 16 NG/KG, PER MIN
     Route: 042
  2. ELIQUIS [Concomitant]
     Active Substance: APIXABAN
  3. LETAIRIS [Concomitant]
     Active Substance: AMBRISENTAN
  4. TADALAFIL. [Concomitant]
     Active Substance: TADALAFIL

REACTIONS (16)
  - Peripheral swelling [Recovering/Resolving]
  - Arrhythmia [Recovering/Resolving]
  - Haemodilution [Recovering/Resolving]
  - Anaemia [Recovering/Resolving]
  - Packed red blood cell transfusion [Unknown]
  - Generalised oedema [Recovering/Resolving]
  - Fatigue [Recovering/Resolving]
  - Infection [Recovering/Resolving]
  - Diarrhoea [Unknown]
  - Haemoglobin decreased [Recovering/Resolving]
  - Pain in jaw [Unknown]
  - Pyrexia [Recovering/Resolving]
  - Dyspnoea exertional [Unknown]
  - Fluid retention [Recovering/Resolving]
  - Tinnitus [Unknown]
  - Haematocrit decreased [Recovering/Resolving]
